FAERS Safety Report 15468164 (Version 4)
Quarter: 2019Q4

REPORT INFORMATION
  Report Type: Report from Study
  Country: JP (occurrence: JP)
  Receive Date: 20181005
  Receipt Date: 20191108
  Transmission Date: 20200122
  Serious: Yes (Hospitalization, Other)
  Sender: FDA-Public Use
  Company Number: JP-VIIV HEALTHCARE LIMITED-JP2017JPN102704

PATIENT
  Age: 6 Decade
  Sex: Male

DRUGS (15)
  1. VENETLIN INHALATION [Concomitant]
     Indication: ANTIFUNGAL PROPHYLAXIS
     Dosage: 0.3 ML, UNK
     Dates: end: 20161107
  2. DOLUTEGRAVIR [Suspect]
     Active Substance: DOLUTEGRAVIR
     Indication: HIV INFECTION
     Dosage: 50 MG, 1D
     Route: 048
     Dates: start: 20150713
  3. BENAMBAX [Concomitant]
     Active Substance: PENTAMIDINE
     Indication: ANTIFUNGAL PROPHYLAXIS
     Dosage: 0.33 V, UNK
     Dates: end: 20161107
  4. NIFEDIPINE CR [Concomitant]
     Active Substance: NIFEDIPINE
     Dosage: UNK
     Dates: start: 20180122
  5. AIMMUGEN [Concomitant]
     Indication: PROPHYLAXIS
     Dosage: UNK
     Dates: start: 20180806, end: 20180806
  6. NITOROL [Concomitant]
     Active Substance: ISOSORBIDE DINITRATE
     Indication: HYPERTENSION
     Dosage: UNK
  7. FUROSEMIDE. [Concomitant]
     Active Substance: FUROSEMIDE
     Dosage: UNK
     Dates: start: 20180208, end: 20180404
  8. TRUVADA [Concomitant]
     Active Substance: EMTRICITABINE\TENOFOVIR DISOPROXIL FUMARATE
     Indication: HIV INFECTION
     Dosage: 1 DF, 1D
     Dates: start: 20150713, end: 20170423
  9. ENALAPRIL [Concomitant]
     Active Substance: ENALAPRIL
     Indication: HYPERTENSION
     Dosage: UNK
  10. GENTAMICIN SULFATE OINTMENT [Concomitant]
     Indication: PROPHYLAXIS
     Dosage: UNK
     Dates: start: 20180122, end: 20180207
  11. CANDESARTAN CILEXETIL TABLET [Concomitant]
     Dosage: UNK
     Dates: start: 20180208
  12. LANSOPRAZOLE-OD TABLETS [Concomitant]
     Indication: PROPHYLAXIS
     Dosage: UNK
     Dates: start: 20171106
  13. BISOPROLOL FUMARATE TABLET [Concomitant]
     Dosage: UNK
     Dates: start: 20190218
  14. DESCOVY [Concomitant]
     Active Substance: EMTRICITABINE\TENOFOVIR ALAFENAMIDE FUMARATE
     Indication: HIV INFECTION
     Dosage: 1 DF, 1D
     Dates: start: 20170424
  15. ADALAT [Concomitant]
     Active Substance: NIFEDIPINE
     Indication: HYPERTENSION
     Dosage: UNK

REACTIONS (3)
  - Dyslipidaemia [Recovering/Resolving]
  - Angina pectoris [Recovering/Resolving]
  - Tooth abscess [Recovered/Resolved]

NARRATIVE: CASE EVENT DATE: 20160411
